FAERS Safety Report 10561411 (Version 1)
Quarter: 2014Q4

REPORT INFORMATION
  Report Type: Spontaneous
  Country: GB (occurrence: GB)
  Receive Date: 20141103
  Receipt Date: 20141103
  Transmission Date: 20150529
  Serious: No
  Sender: FDA-Public Use
  Company Number: GB-009507513-1411GBR000244

PATIENT
  Age: 61 Year
  Sex: Male

DRUGS (1)
  1. EZETROL [Suspect]
     Active Substance: EZETIMIBE
     Indication: BLOOD CHOLESTEROL INCREASED
     Dosage: 10 MG, UNK
     Dates: start: 2011

REACTIONS (11)
  - Myalgia [Unknown]
  - Tenderness [Unknown]
  - Quality of life decreased [Unknown]
  - Activities of daily living impaired [Unknown]
  - Fatigue [Unknown]
  - Asthenia [Unknown]
  - Social avoidant behaviour [Unknown]
  - Mental disorder [Unknown]
  - Psychiatric symptom [Unknown]
  - Diarrhoea [Unknown]
  - Balance disorder [Unknown]
